FAERS Safety Report 4468308-1 (Version None)
Quarter: 2004Q4

REPORT INFORMATION
  Report Type: 
  Country: None (occurrence: None)
  Receive Date: 20041007
  Receipt Date: 20041004
  Transmission Date: 20050328
  Serious: Yes (Life-Threatening, Hospitalization, Disabling)
  Sender: FDA-Public Use
  Company Number: US-MERCK-0410USA00497

PATIENT
  Age: 65 Year
  Sex: Male

DRUGS (3)
  1. ATENOLOL [Concomitant]
     Route: 065
  2. LIPITOR [Concomitant]
     Route: 065
  3. VIOXX [Suspect]
     Indication: ARTHRITIS
     Route: 048
     Dates: start: 19990101

REACTIONS (1)
  - CORONARY ARTERY OCCLUSION [None]
